FAERS Safety Report 7916811-1 (Version None)
Quarter: 2011Q4

REPORT INFORMATION
  Report Type: 
  Country: None (occurrence: None)
  Receive Date: 20111116
  Receipt Date: 20111114
  Transmission Date: 20120403
  Serious: Yes (Hospitalization)
  Sender: FDA-Public Use
  Company Number: US-TEVA-308480USA

PATIENT
  Sex: Female

DRUGS (1)
  1. DEXTROAMPHETAMINE SULFATE [Suspect]
     Indication: HEAD INJURY

REACTIONS (6)
  - DISTURBANCE IN ATTENTION [None]
  - WHITE BLOOD CELL COUNT DECREASED [None]
  - IRRITABILITY [None]
  - NAUSEA [None]
  - HYPOTHERMIA [None]
  - MALAISE [None]
